FAERS Safety Report 5079932-X (Version None)
Quarter: 2006Q3

REPORT INFORMATION
  Report Type: 
  Country: None (occurrence: None)
  Receive Date: 20060720
  Receipt Date: 20050705
  Transmission Date: 20061208
  Serious: Yes (Hospitalization, Other)
  Sender: FDA-Public Use
  Company Number: 2005100253

PATIENT
  Age: 64 Year
  Sex: Male
  Weight: 70.7611 kg

DRUGS (9)
  1. CELEBREX [Suspect]
     Indication: ILL-DEFINED DISORDER
     Dates: start: 20001003, end: 20030916
  2. SMIVASTATIN (SIMVASTATIN) [Concomitant]
  3. VERAPAMIL [Concomitant]
  4. BECONASE (BECLOMETASONE DIPROPIONATE) [Concomitant]
  5. COMBIVENT [Concomitant]
  6. ALBUTEROL [Concomitant]
  7. XANAX [Concomitant]
  8. QUININE SULFATE [Concomitant]
  9. MOTRIN [Concomitant]

REACTIONS (2)
  - ACUTE MYOCARDIAL INFARCTION [None]
  - CORONARY ARTERY OCCLUSION [None]
